FAERS Safety Report 7662535-8 (Version None)
Quarter: 2011Q3

REPORT INFORMATION
  Report Type: 
  Country: None (occurrence: None)
  Receive Date: 20110805
  Receipt Date: 20101123
  Transmission Date: 20111222
  Serious: No
  Sender: FDA-Public Use
  Company Number: US-ABBOTT-10P-163-0687402-00

PATIENT
  Sex: Male
  Weight: 94.432 kg

DRUGS (3)
  1. ACTOS [Concomitant]
     Indication: PRODUCT USED FOR UNKNOWN INDICATION
  2. NIASPAN [Suspect]
     Indication: BLOOD TRIGLYCERIDES INCREASED
     Dosage: AFTER DINNER
     Dates: start: 20101116
  3. ASPIRIN [Concomitant]
     Indication: PRODUCT USED FOR UNKNOWN INDICATION
     Dosage: IN THE MORNING

REACTIONS (4)
  - PARAESTHESIA [None]
  - HOT FLUSH [None]
  - FEELING ABNORMAL [None]
  - FEELING HOT [None]
